FAERS Safety Report 14760489 (Version 2)
Quarter: 2018Q2

REPORT INFORMATION
  Report Type: Report from Study
  Country: IL (occurrence: IL)
  Receive Date: 20180414
  Receipt Date: 20180517
  Transmission Date: 20180711
  Serious: Yes (Life-Threatening, Hospitalization, Other)
  Sender: FDA-Public Use
  Company Number: IL-AMGEN-ISRSL2018047965

PATIENT
  Age: 56 Year
  Sex: Male

DRUGS (8)
  1. ALPHA D3 [Concomitant]
     Active Substance: ALFACALCIDOL
     Dosage: 1 MCG, QD
  2. CELLCEPT [Concomitant]
     Active Substance: MYCOPHENOLATE MOFETIL\MYCOPHENOLATE MOFETIL HYDROCHLORIDE
     Dosage: 500 MG, QWK
  3. LOSEC [Concomitant]
     Active Substance: OMEPRAZOLE
     Dosage: 20 MG, QD
     Route: 048
  4. ALLOPURINOL. [Concomitant]
     Active Substance: ALLOPURINOL
     Dosage: 300 MG, QD
     Route: 048
  5. VECTOR PLUS [Concomitant]
     Dosage: 1 DF (80 MG/12.5 MG), QD
  6. NPLATE [Suspect]
     Active Substance: ROMIPLOSTIM
     Indication: IMMUNE THROMBOCYTOPENIC PURPURA
     Dosage: 500 MUG, QWK
     Route: 058
     Dates: start: 20160330, end: 2018
  7. FOLIC ACID. [Concomitant]
     Active Substance: FOLIC ACID
     Dosage: 5 MG, QD
     Route: 048
  8. INSULIN GLARGINE [Concomitant]
     Active Substance: INSULIN GLARGINE
     Dosage: 100 IU/ 1 ML, QD
     Route: 058

REACTIONS (8)
  - Blood creatinine increased [Unknown]
  - Anti B antibody positive [Not Recovered/Not Resolved]
  - Complications of transplanted kidney [Unknown]
  - Renal transplant [Unknown]
  - Platelet count increased [Not Recovered/Not Resolved]
  - Secretion discharge [Unknown]
  - Splenectomy [Unknown]
  - Oliguria [Unknown]

NARRATIVE: CASE EVENT DATE: 2018
